FAERS Safety Report 21683928 (Version 1)
Quarter: 2022Q4

REPORT INFORMATION
  Report Type: Spontaneous
  Country: US (occurrence: None)
  Receive Date: 20221204
  Receipt Date: 20221204
  Transmission Date: 20230113
  Serious: Yes (Disabling)
  Sender: FDA-Public Use
  Company Number: None

PATIENT
  Age: 36 Year
  Sex: Female
  Weight: 69.75 kg

DRUGS (9)
  1. SYMBICORT [Suspect]
     Active Substance: BUDESONIDE\FORMOTEROL FUMARATE DIHYDRATE
     Indication: Asthma
     Dosage: OTHER QUANTITY : 160 INHALATION(S);?FREQUENCY : TWICE A DAY;?
     Route: 055
     Dates: start: 20221110, end: 20221202
  2. DOXYCYCLINE [Concomitant]
     Active Substance: DOXYCYCLINE
  3. METRONIDAZOLE [Concomitant]
     Active Substance: METRONIDAZOLE
  4. VITAMINS [Concomitant]
     Active Substance: VITAMINS
  5. VITAMIN D [Concomitant]
     Active Substance: VITAMIN D NOS
  6. HERBALS [Concomitant]
     Active Substance: HERBALS
  7. 5-HTP [Concomitant]
  8. MELATONIN [Concomitant]
     Active Substance: MELATONIN
  9. CAFFEINE [Concomitant]
     Active Substance: CAFFEINE

REACTIONS (11)
  - Anxiety [None]
  - Paranoia [None]
  - Dyspnoea [None]
  - Confusional state [None]
  - Emotional distress [None]
  - Mood swings [None]
  - Crying [None]
  - Conversion disorder [None]
  - Perioral dermatitis [None]
  - Acne [None]
  - Screaming [None]

NARRATIVE: CASE EVENT DATE: 20221125
